FAERS Safety Report 12998317 (Version 1)
Quarter: 2016Q4

REPORT INFORMATION
  Report Type: Spontaneous
  Country: US (occurrence: US)
  Receive Date: 20161203
  Receipt Date: 20161203
  Transmission Date: 20170207
  Serious: Yes (Hospitalization)
  Sender: FDA-Public Use
  Company Number: None

PATIENT
  Age: 46 Year
  Sex: Female
  Weight: 63 kg

DRUGS (17)
  1. ADVAIR HFA [Concomitant]
     Active Substance: FLUTICASONE PROPIONATE\SALMETEROL XINAFOATE
  2. PLAVIX [Concomitant]
     Active Substance: CLOPIDOGREL BISULFATE
  3. ADEK [Concomitant]
  4. VITAMIN B [Concomitant]
     Active Substance: VITAMIN B
  5. HYPERSAL [Concomitant]
  6. CALCIUM [Concomitant]
     Active Substance: CALCIUM
  7. AMOXICILLIN. [Suspect]
     Active Substance: AMOXICILLIN
     Indication: TOOTH INFECTION
     Dosage: ?          QUANTITY:1 TABLET(S);?
     Route: 048
  8. ORKAMBI [Concomitant]
     Active Substance: IVACAFTOR\LUMACAFTOR
  9. NOVOLOG [Concomitant]
     Active Substance: INSULIN ASPART
  10. CREON MT16 [Concomitant]
  11. AZYTHROMAX [Concomitant]
  12. ALBUTEROL. [Concomitant]
     Active Substance: ALBUTEROL
  13. VITAMIN C [Concomitant]
     Active Substance: ASCORBIC ACID
  14. ASPIRIN. [Concomitant]
     Active Substance: ASPIRIN
  15. PULMOZYME [Concomitant]
     Active Substance: DORNASE ALFA
  16. ZOSYN [Suspect]
     Active Substance: PIPERACILLIN SODIUM\TAZOBACTAM SODIUM
     Indication: CYSTIC FIBROSIS
     Route: 042
  17. TOUJEO [Concomitant]
     Active Substance: INSULIN GLARGINE

REACTIONS (1)
  - Clostridium difficile infection [None]

NARRATIVE: CASE EVENT DATE: 20160719
